FAERS Safety Report 11537911 (Version 1)
Quarter: 2015Q3

REPORT INFORMATION
  Report Type: Spontaneous
  Country: US (occurrence: US)
  Receive Date: 20150922
  Receipt Date: 20150922
  Transmission Date: 20151125
  Serious: No
  Sender: FDA-Public Use
  Company Number: US-SA-2014SA149913

PATIENT
  Age: 22 Year
  Sex: Female

DRUGS (2)
  1. TUBERCULIN PPD [Suspect]
     Active Substance: TUBERCULIN PURIFIED PROTEIN DERIVATIVE
     Indication: IMMUNISATION
     Route: 065
  2. FLUZONE [Suspect]
     Active Substance: INFLUENZA A VIRUS A/CALIFORNIA/7/2009 X-179A (H1N1) ANTIGEN (FORMALDEHYDE INACTIVATED)\INFLUENZA A VIRUS A/VICTORIA/210/2009 X-187 (H3N2) ANTIGEN (FORMALDEHYDE INACTIVATED)\INFLUENZA B VIRUS B/BRISBANE/60/2008 ANTIGEN (FORMALDEHYDE INACTIVATED)
     Indication: IMMUNISATION
     Route: 023
     Dates: start: 20141024, end: 20141024

REACTIONS (5)
  - Vaccination site pain [Recovered/Resolved]
  - Vaccination site inflammation [Recovered/Resolved]
  - Incorrect route of drug administration [Unknown]
  - Wrong drug administered [Unknown]
  - Underdose [Unknown]

NARRATIVE: CASE EVENT DATE: 20141025
